FAERS Safety Report 7770216-5 (Version None)
Quarter: 2011Q3

REPORT INFORMATION
  Report Type: 
  Country: None (occurrence: None)
  Receive Date: 20110922
  Receipt Date: 20110428
  Transmission Date: 20111222
  Serious: No
  Sender: FDA-Public Use
  Company Number: US-ASTRAZENECA-2011SE25687

PATIENT
  Age: 25 Year
  Sex: Male

DRUGS (1)
  1. SEROQUEL XR [Suspect]
     Route: 048

REACTIONS (5)
  - NAUSEA [None]
  - SOCIAL PHOBIA [None]
  - GENITAL PAIN [None]
  - DRUG DOSE OMISSION [None]
  - HEART RATE INCREASED [None]
